FAERS Safety Report 16287037 (Version 1)
Quarter: 2019Q2

REPORT INFORMATION
  Report Type: Report from Study
  Country: US (occurrence: US)
  Receive Date: 20190508
  Receipt Date: 20190508
  Transmission Date: 20190711
  Serious: Yes (Death)
  Sender: FDA-Public Use
  Company Number: US-PFIZER INC-2019192936

PATIENT
  Age: 88 Year
  Sex: Female
  Weight: 49.43 kg

DRUGS (10)
  1. CALCIUM FOLINATE [Suspect]
     Active Substance: LEUCOVORIN CALCIUM
     Indication: PANCREATIC CARCINOMA METASTATIC
     Dosage: 580 MG, CYCLICAL
     Route: 042
     Dates: start: 20181119, end: 20181204
  2. CALCIUM FOLINATE [Suspect]
     Active Substance: LEUCOVORIN CALCIUM
     Dosage: UNK
     Route: 042
     Dates: start: 20181226, end: 20190108
  3. FOSAMAX [Concomitant]
     Active Substance: ALENDRONATE SODIUM
  4. OXALIPLATIN. [Suspect]
     Active Substance: OXALIPLATIN
     Dosage: UNK
     Route: 042
     Dates: start: 20181226, end: 20190108
  5. 5-FU [Suspect]
     Active Substance: FLUOROURACIL
     Dosage: 3480 MG, CYCLIC
     Route: 042
     Dates: start: 20181119, end: 20181206
  6. CALTRATE WITH VITAMIN D [Concomitant]
     Active Substance: CALCIUM CARBONATE\CHOLECALCIFEROL
     Indication: OSTEOPOROSIS
  7. OXALIPLATIN. [Suspect]
     Active Substance: OXALIPLATIN
     Indication: PANCREATIC CARCINOMA METASTATIC
     Dosage: 123 MG, CYCLICAL
     Route: 042
     Dates: start: 20181119, end: 20181204
  8. VITAMIN D NOS [Concomitant]
     Active Substance: VITAMIN D NOS
  9. 5-FU [Suspect]
     Active Substance: FLUOROURACIL
     Indication: PANCREATIC CARCINOMA METASTATIC
     Dosage: 580 MG, SINGLE
     Route: 040
     Dates: start: 20181119, end: 20181119
  10. 5-FU [Suspect]
     Active Substance: FLUOROURACIL
     Dosage: UNK
     Route: 042
     Dates: start: 20181226, end: 20190110

REACTIONS (1)
  - Sepsis [Fatal]
